FAERS Safety Report 8986390 (Version 2)
Quarter: 2013Q1

REPORT INFORMATION
  Report Type: Spontaneous
  Country: US (occurrence: US)
  Receive Date: 20121226
  Receipt Date: 20130129
  Transmission Date: 20140127
  Serious: Yes (Other)
  Sender: FDA-Public Use
  Company Number: PHEH2012US025120

PATIENT
  Age: 60 Year
  Sex: Male

DRUGS (4)
  1. TOBI [Suspect]
     Indication: CYSTIC FIBROSIS
     Dosage: 300 MG, BID
     Dates: start: 20121212
  2. ADVAIR [Concomitant]
     Dosage: UNK UKN, UNK
  3. PULMOZYME [Concomitant]
     Dosage: UNK UKN, UNK
  4. SODIUM CHLORIDE [Concomitant]

REACTIONS (3)
  - Renal pain [Not Recovered/Not Resolved]
  - Tinnitus [Not Recovered/Not Resolved]
  - Haemoptysis [Recovered/Resolved]
